FAERS Safety Report 9629640 (Version 1)
Quarter: 2013Q4

REPORT INFORMATION
  Report Type: Spontaneous
  Country: US (occurrence: US)
  Receive Date: 20131017
  Receipt Date: 20131017
  Transmission Date: 20140711
  Serious: Yes (Other)
  Sender: FDA-Public Use
  Company Number: US-BANPHARM-20131770

PATIENT
  Age: 68 Year
  Sex: Female

DRUGS (1)
  1. ZYRTEC LIQUID GELS 10 MG [Suspect]
     Route: 048

REACTIONS (1)
  - Choking [Unknown]
